FAERS Safety Report 7939670-X (Version None)
Quarter: 2011Q4

REPORT INFORMATION
  Report Type: 
  Country: None (occurrence: None)
  Receive Date: 20111125
  Receipt Date: 20111116
  Transmission Date: 20120403
  Serious: Yes (Hospitalization)
  Sender: FDA-Public Use
  Company Number: PHHY2011CA101442

PATIENT
  Sex: Female

DRUGS (1)
  1. CLOZARIL [Suspect]

REACTIONS (8)
  - RENAL FAILURE ACUTE [None]
  - CONFUSIONAL STATE [None]
  - URINARY TRACT INFECTION [None]
  - BRONCHITIS [None]
  - DISORIENTATION [None]
  - VOMITING [None]
  - DYSARTHRIA [None]
  - HYPOTENSION [None]
